FAERS Safety Report 7479361-5 (Version None)
Quarter: 2011Q2

REPORT INFORMATION
  Report Type: 
  Country: None (occurrence: None)
  Receive Date: 20110513
  Receipt Date: 20110509
  Transmission Date: 20111010
  Serious: Yes (Hospitalization, Other)
  Sender: FDA-Public Use
  Company Number: DE-ABBOTT-11P-062-0709697-00

PATIENT
  Sex: Female

DRUGS (2)
  1. HUMIRA [Suspect]
     Indication: RHEUMATOID ARTHRITIS
     Dosage: 40MG PREFILLED SYRINGE, EVERY EVERY 8TH DAY
     Dates: start: 20101104, end: 20110401
  2. HUMIRA [Suspect]
     Indication: RHEUMATOID ARTHRITIS
     Dates: end: 20110401

REACTIONS (4)
  - SEPSIS [None]
  - CARDIAC INFECTION [None]
  - NASOPHARYNGITIS [None]
  - DIALYSIS [None]
